FAERS Safety Report 8157393-1 (Version None)
Quarter: 2012Q1

REPORT INFORMATION
  Report Type: 
  Country: None (occurrence: None)
  Receive Date: 20120103
  Receipt Date: 20111003
  Transmission Date: 20120608
  Serious: No
  Sender: FDA-Public Use
  Company Number: AE-2011-002009

PATIENT
  Sex: Male
  Weight: 85.7298 kg

DRUGS (11)
  1. PLAVIX [Concomitant]
  2. LANTUS [Concomitant]
  3. ASCORBIC ACID [Concomitant]
  4. LOVAZA (FISH OIL) [Concomitant]
  5. PRANDIN [Concomitant]
  6. PEG-INTRON [Concomitant]
  7. INCIVEK [Suspect]
     Dosage: 2250 MG (750 MG, 1 IN 8 HR)
     Dates: start: 20110913
  8. ELAVIL [Concomitant]
  9. LACTULOSE [Concomitant]
  10. B12 (CYANOCOBALAMIN) [Concomitant]
  11. RIBAVIRIN [Concomitant]

REACTIONS (2)
  - ORAL MUCOSAL ERYTHEMA [None]
  - EYE PAIN [None]
